FAERS Safety Report 5255082-4 (Version None)
Quarter: 2007Q1

REPORT INFORMATION
  Report Type: 
  Country: None (occurrence: None)
  Receive Date: 20070305
  Receipt Date: 20070226
  Transmission Date: 20070707
  Serious: Yes (Hospitalization)
  Sender: FDA-Public Use
  Company Number: US-JNJFOC-20070206525

PATIENT
  Sex: Male
  Weight: 102.06 kg

DRUGS (11)
  1. FENTANYL TRANSDERMAL SYSTEM [Suspect]
     Route: 062
  2. FENTANYL TRANSDERMAL SYSTEM [Suspect]
     Indication: BACK PAIN
     Route: 062
  3. DIOVAN [Concomitant]
     Indication: HYPERTENSION
     Route: 048
  4. STRATTERA [Concomitant]
     Indication: ATTENTION DEFICIT/HYPERACTIVITY DISORDER
     Route: 048
  5. NIFEDIPINE [Concomitant]
     Indication: HYPERTENSION
     Route: 048
  6. ALTACE [Concomitant]
     Indication: HYPERTENSION
     Route: 048
  7. VYTORIN [Concomitant]
     Indication: BLOOD CHOLESTEROL INCREASED
     Route: 048
  8. ACTOS [Concomitant]
     Indication: DIABETES MELLITUS NON-INSULIN-DEPENDENT
     Route: 048
  9. METFORMIN [Concomitant]
     Indication: DIABETES MELLITUS NON-INSULIN-DEPENDENT
     Route: 048
  10. FLOMOX [Concomitant]
     Indication: BENIGN PROSTATIC HYPERPLASIA
     Route: 048
  11. XANAX [Concomitant]
     Indication: BLOOD PRESSURE
     Route: 048

REACTIONS (9)
  - BLOOD SODIUM DECREASED [None]
  - DRUG INEFFECTIVE [None]
  - FOOT FRACTURE [None]
  - HEADACHE [None]
  - MOOD ALTERED [None]
  - PANIC REACTION [None]
  - PERSONALITY DISORDER [None]
  - STEREOTYPY [None]
  - VOMITING [None]
